FAERS Safety Report 5275173-1 (Version None)
Quarter: 2007Q1

REPORT INFORMATION
  Report Type: 
  Country: None (occurrence: None)
  Receive Date: 20070320
  Receipt Date: 20070312
  Transmission Date: 20070707
  Serious: Yes (Other)
  Sender: FDA-Public Use
  Company Number: 153905ISR

PATIENT
  Age: 60 Year
  Sex: Male

DRUGS (1)
  1. SIMVASTATIN [Suspect]
     Dosage: ?? (10 MG) ORAL
     Route: 048

REACTIONS (2)
  - CONDITION AGGRAVATED [None]
  - MOUTH ULCERATION [None]
